FAERS Safety Report 10719625 (Version 1)
Quarter: 2015Q1

REPORT INFORMATION
  Report Type: Spontaneous
  Country: US (occurrence: US)
  Receive Date: 20150119
  Receipt Date: 20150119
  Transmission Date: 20150721
  Serious: No
  Sender: FDA-Public Use
  Company Number: US-UNITED THERAPEUTICS-UNT-2014-010812

PATIENT
  Sex: Male
  Weight: 117.1 kg

DRUGS (2)
  1. ADCIRCA [Concomitant]
     Active Substance: TADALAFIL
     Indication: PRODUCT USED FOR UNKNOWN INDICATION
  2. TYVASO [Suspect]
     Active Substance: TREPROSTINIL
     Indication: PULMONARY HYPERTENSION
     Dosage: 18-54 MICROGRAMS, QID
     Dates: start: 20140116

REACTIONS (8)
  - Headache [Unknown]
  - Ascites [Unknown]
  - Chest pain [Unknown]
  - Dyspnoea [Unknown]
  - Urticaria [Not Recovered/Not Resolved]
  - Diverticulitis [Unknown]
  - Diarrhoea [None]
  - Pain in jaw [Unknown]

NARRATIVE: CASE EVENT DATE: 2014
